FAERS Safety Report 25970541 (Version 1)
Quarter: 2025Q4

REPORT INFORMATION
  Report Type: Spontaneous
  Country: GB (occurrence: GB)
  Receive Date: 20251028
  Receipt Date: 20251028
  Transmission Date: 20260118
  Serious: Yes (Other)
  Sender: ESPERION THERAPEUTICS
  Company Number: None

PATIENT

DRUGS (6)
  1. BEMPEDOIC ACID\EZETIMIBE [Suspect]
     Active Substance: BEMPEDOIC ACID\EZETIMIBE
     Indication: Epicondylitis
     Dosage: ONE TO BE TAKEN ONCE DAILY
     Route: 065
     Dates: start: 20250427, end: 20250619
  2. BEMPEDOIC ACID\EZETIMIBE [Concomitant]
     Active Substance: BEMPEDOIC ACID\EZETIMIBE
     Indication: Epicondylitis
     Dosage: ONE TO BE TAKEN ONCE DAILY
     Route: 065
     Dates: start: 20250326, end: 20250619
  3. ESTRADIOL [Concomitant]
     Active Substance: ESTRADIOL
     Indication: Epicondylitis
     Dosage: ONE PATCH TO BE APPLIED TWICE WEEKLY (MIRENA IUS INSERTED 2022)
     Route: 065
     Dates: start: 20250326
  4. METHYLPREDNISOLONE ACETATE [Concomitant]
     Active Substance: METHYLPREDNISOLONE ACETATE
     Indication: Product used for unknown indication
     Dosage: 1 IMMEDIATELY. FP34
     Route: 065
     Dates: start: 20250326, end: 20250508
  5. LIDOCAINE [Concomitant]
     Active Substance: LIDOCAINE
     Indication: Product used for unknown indication
     Dosage: 1 IMMEDIATELY. FP34
     Route: 065
     Dates: start: 20250326, end: 20250508
  6. EZETIMIBE [Concomitant]
     Active Substance: EZETIMIBE
     Indication: Product used for unknown indication
     Dosage: ONE TO BE TAKEN EACH DAY
     Route: 065
     Dates: start: 20250603

REACTIONS (3)
  - Myalgia [Unknown]
  - Arthralgia [Unknown]
  - Migraine [Unknown]
